FAERS Safety Report 6488853-7 (Version None)
Quarter: 2009Q4

REPORT INFORMATION
  Report Type: 
  Country: None (occurrence: None)
  Receive Date: 20091210
  Receipt Date: 20091201
  Transmission Date: 20100525
  Serious: Yes (Hospitalization)
  Sender: FDA-Public Use
  Company Number: US-ROCHE-673268

PATIENT

DRUGS (5)
  1. BEVACIZUMAB [Suspect]
     Indication: COLON CANCER
     Dosage: 5 MG/KG OVER 30-90 MIN, Q2W
     Route: 042
     Dates: start: 20090918
  2. OXALIPLATIN [Suspect]
     Indication: COLON CANCER
     Dosage: 85 MG/M2 OVER 2 HRS, Q2W
     Route: 042
     Dates: start: 20090918
  3. LEUCOVORIN CALCIUM [Suspect]
     Indication: COLON CANCER
     Dosage: 400 MG/M2 OVER 2 HRS, Q2W
     Route: 042
     Dates: start: 20090918
  4. FLUOROURACIL [Suspect]
     Indication: COLON CANCER
     Dosage: 400 MG/M2, Q2W
     Route: 040
     Dates: start: 20090918
  5. FLUOROURACIL [Suspect]
     Dosage: 2.4 G/M2, CONTINUOUS OVER 46 HOURS Q2W
     Route: 040
     Dates: start: 20090918

REACTIONS (5)
  - APPENDICITIS [None]
  - DECREASED APPETITE [None]
  - NAUSEA [None]
  - NEUTROPENIA [None]
  - PERIPHERAL SENSORY NEUROPATHY [None]
